FAERS Safety Report 15277440 (Version 2)
Quarter: 2018Q3

REPORT INFORMATION
  Report Type: Spontaneous
  Country: GB (occurrence: GB)
  Receive Date: 20180814
  Receipt Date: 20180831
  Transmission Date: 20181010
  Serious: Yes (Hospitalization)
  Sender: FDA-Public Use
  Company Number: PHHY2018GB070984

PATIENT
  Age: 76 Year
  Sex: Female
  Weight: 72.6 kg

DRUGS (33)
  1. SODIUM LACTATE. [Concomitant]
     Active Substance: SODIUM LACTATE
     Dosage: UNK (125 ML/HR CONTINUOUS INFUSION (125, ONCE))
     Route: 042
     Dates: start: 20180314, end: 20180314
  2. MORPHINE SULFATE. [Concomitant]
     Active Substance: MORPHINE SULFATE
     Indication: PAIN
     Dosage: 0.5 MG, PRN (0.5?2 MG (AS REQUIRED))
     Route: 042
     Dates: start: 20180312
  3. DALTEPARIN [Concomitant]
     Active Substance: DALTEPARIN
     Indication: PRODUCT USED FOR UNKNOWN INDICATION
     Dosage: 1 OT, QD (UNITS (UNKNOWN, 1 IN 1 DAY))
     Route: 058
     Dates: start: 20180312, end: 20180322
  4. METARAMINOL [Concomitant]
     Active Substance: METARAMINOL
     Indication: PRODUCT USED FOR UNKNOWN INDICATION
     Dosage: 0.5 G, PRN
     Route: 042
     Dates: start: 20180313, end: 20180313
  5. ANASTROZOLE. [Concomitant]
     Active Substance: ANASTROZOLE
     Indication: PRODUCT USED FOR UNKNOWN INDICATION
     Dosage: 1 OT, QD
     Route: 048
     Dates: start: 20180312, end: 20180328
  6. LISINOPRIL. [Suspect]
     Active Substance: LISINOPRIL
     Indication: PRODUCT USED FOR UNKNOWN INDICATION
     Dosage: 10 MG, QD
     Route: 048
     Dates: start: 20180314, end: 20180326
  7. VANCOMYCIN [Suspect]
     Active Substance: VANCOMYCIN
     Indication: INFECTION
     Dosage: 1000 MG, UNK (IN SODIUM CHLORIDE 0.9% 50 ML INFUSION (1000 MG, AS REQUIRED)
     Route: 065
     Dates: start: 20180313, end: 20180313
  8. CYCLIZINE [Concomitant]
     Active Substance: CYCLIZINE
     Indication: VOMITING
     Dosage: 50 MG, PRN
     Route: 042
     Dates: start: 20180313, end: 20180314
  9. PARACETAMOL [Concomitant]
     Active Substance: ACETAMINOPHEN
     Indication: PAIN
     Dosage: UNK (ONCE)
     Route: 042
     Dates: start: 20180312, end: 20180312
  10. VANCOMYCIN [Suspect]
     Active Substance: VANCOMYCIN
     Dosage: 1000 MG, QD (24 HOUR) (IN SODIUM CHLORIDE 0.9% 250 ML INFUSION (1000 MG, 1 IN 24 HOURS)
     Route: 065
     Dates: start: 20180314
  11. GENTAMICIN. [Suspect]
     Active Substance: GENTAMICIN
     Indication: PRODUCT USED FOR UNKNOWN INDICATION
     Dosage: 120 MG, PRN
     Route: 065
     Dates: start: 20180313, end: 20180313
  12. SODIUM LACTATE. [Concomitant]
     Active Substance: SODIUM LACTATE
     Dosage: UNK (100 ML/HR CONTINUOUS INFUSION (100, ONCE))
     Route: 042
     Dates: start: 20180313, end: 20180314
  13. CYCLIZINE [Concomitant]
     Active Substance: CYCLIZINE
     Indication: NAUSEA
     Dosage: UNK
     Route: 065
  14. PROPOFOL. [Concomitant]
     Active Substance: PROPOFOL
     Indication: SEDATION
     Dosage: UNK
     Route: 065
  15. MORPHINE SULFATE. [Concomitant]
     Active Substance: MORPHINE SULFATE
     Dosage: UNK
     Route: 042
     Dates: start: 20180313, end: 20180313
  16. MORPHINE SULFATE. [Concomitant]
     Active Substance: MORPHINE SULFATE
     Dosage: 2.5 MG, PRN (2.5?10 MG (AS REQUIRED))
     Route: 048
     Dates: end: 20180315
  17. AMITRIPTYLINE [Concomitant]
     Active Substance: AMITRIPTYLINE
     Indication: PRODUCT USED FOR UNKNOWN INDICATION
     Dosage: 50 MG, QD
     Route: 048
     Dates: start: 20180312, end: 20180313
  18. NALOXONE [Concomitant]
     Active Substance: NALOXONE
     Indication: PRODUCT USED FOR UNKNOWN INDICATION
     Dosage: 100 UG, PRN
     Route: 042
     Dates: start: 20180313, end: 20180314
  19. VANCOMYCIN [Suspect]
     Active Substance: VANCOMYCIN
     Dosage: 1000 MG, QD (24 HOUR) (IN SODIUM CHLORIDE 0.9% 250 ML INFUSION (1000 MG, 1 IN 24 HOURS)
     Route: 065
     Dates: start: 20180315
  20. SODIUM LACTATE. [Concomitant]
     Active Substance: SODIUM LACTATE
     Indication: PRODUCT USED FOR UNKNOWN INDICATION
     Dosage: UNK
     Route: 042
     Dates: start: 20180312
  21. AMITRIPTYLINE [Concomitant]
     Active Substance: AMITRIPTYLINE
     Dosage: 50 MG, QD
     Route: 048
     Dates: start: 20180317, end: 20180328
  22. SODIUM CHLORIDE. [Concomitant]
     Active Substance: SODIUM CHLORIDE
     Indication: PRODUCT USED FOR UNKNOWN INDICATION
     Dosage: 1000 ML, ONCE
     Route: 042
     Dates: start: 20180317, end: 20180319
  23. LISINOPRIL. [Suspect]
     Active Substance: LISINOPRIL
     Dosage: 2.5 MG, QD
     Route: 048
     Dates: start: 20180419, end: 20180419
  24. MACROGOL [Concomitant]
     Active Substance: POLYETHYLENE GLYCOLS
     Indication: PRODUCT USED FOR UNKNOWN INDICATION
     Dosage: 2 DF, QD (1 SACHET, BID)
     Route: 048
     Dates: start: 20180313, end: 20180328
  25. TRANEXAMIC ACID. [Concomitant]
     Active Substance: TRANEXAMIC ACID
     Indication: PRODUCT USED FOR UNKNOWN INDICATION
     Dosage: 1 G, PRN
     Route: 065
     Dates: start: 20180313, end: 20180313
  26. LISINOPRIL. [Suspect]
     Active Substance: LISINOPRIL
     Dosage: 2.5 MG, QD
     Route: 048
     Dates: start: 20180326, end: 20180328
  27. PENTHROX [Suspect]
     Active Substance: METHOXYFLURANE
     Indication: PAIN
     Dosage: UNK (6?10 PUFFS 99.9% METHOXYFLURANE AT 18:30 AND AT 19:45)
     Route: 055
     Dates: start: 20180312, end: 20180312
  28. SODIUM LACTATE. [Concomitant]
     Active Substance: SODIUM LACTATE
     Dosage: UNK
     Route: 042
     Dates: end: 20180317
  29. LEVOBUPIVACAINE [Concomitant]
     Active Substance: LEVOBUPIVACAINE
     Indication: PRODUCT USED FOR UNKNOWN INDICATION
     Dosage: UNK UNK, PRN
     Route: 065
     Dates: start: 20180313, end: 20180313
  30. PARACETAMOL [Concomitant]
     Active Substance: ACETAMINOPHEN
     Dosage: UNK (PARACETAMOL TABLET 1G OR INFUSION 1G (1 GRAM,4 IN 1 DAY))
     Route: 065
     Dates: start: 20180313, end: 20180328
  31. PROPOFOL. [Concomitant]
     Active Substance: PROPOFOL
     Indication: INJURY
     Dosage: 10 MG, UNK (10?30 MG, UNK)
     Route: 042
     Dates: start: 20180312, end: 20180312
  32. IOHEXOL [Concomitant]
     Active Substance: IOHEXOL
     Indication: PRODUCT USED FOR UNKNOWN INDICATION
     Dosage: 70 ML, UNK (70 ML, ONCE)
     Route: 042
     Dates: start: 20180319, end: 20180319
  33. FENTANYL. [Concomitant]
     Active Substance: FENTANYL
     Indication: PRODUCT USED FOR UNKNOWN INDICATION
     Dosage: UNK (25?50 MCG, PRN)
     Route: 042
     Dates: start: 20180313, end: 20180313

REACTIONS (2)
  - Pulmonary embolism [Recovering/Resolving]
  - Acute kidney injury [Recovered/Resolved]

NARRATIVE: CASE EVENT DATE: 20180314
